FAERS Safety Report 6892057-3 (Version None)
Quarter: 2010Q3

REPORT INFORMATION
  Report Type: 
  Country: None (occurrence: None)
  Receive Date: 20100731
  Receipt Date: 20071227
  Transmission Date: 20110219
  Serious: No
  Sender: FDA-Public Use
  Company Number: US-PFIZER INC-2007106851

PATIENT
  Sex: Female
  Weight: 122.7 kg

DRUGS (6)
  1. NEURONTIN [Suspect]
     Indication: HERPES ZOSTER
     Dosage: 8 EVERY 1 DAYS
     Dates: start: 20070701
  2. NEURONTIN [Suspect]
     Indication: INSOMNIA
  3. NEURONTIN [Suspect]
     Indication: BURNING SENSATION
  4. COMBIVENT [Concomitant]
  5. MONTELUKAST SODIUM [Concomitant]
  6. ADVAIR DISKUS 100/50 [Concomitant]

REACTIONS (1)
  - DRUG INEFFECTIVE [None]
